FAERS Safety Report 5383555-2 (Version None)
Quarter: 2007Q3

REPORT INFORMATION
  Report Type: 
  Country: None (occurrence: None)
  Receive Date: 20070706
  Receipt Date: 20070625
  Transmission Date: 20080115
  Serious: Yes (Other)
  Sender: FDA-Public Use
  Company Number: CHNY2007CH02313

PATIENT
  Age: 28 Year
  Sex: Female
  Weight: 51 kg

DRUGS (2)
  1. CLEMASTINE FUMARATE [Suspect]
     Indication: HYPERSENSITIVITY
     Dosage: 1 MG, ONCE/SINGLE, INTRAVENOUS
     Route: 042
     Dates: start: 20070212, end: 20070212
  2. CETIRIZINE HCL [Suspect]
     Indication: HYPERSENSITIVITY
     Dosage: 5 MG, QD, ORAL
     Route: 048
     Dates: start: 20070212, end: 20070213

REACTIONS (2)
  - ABORTION SPONTANEOUS [None]
  - DRUG EXPOSURE DURING PREGNANCY [None]
